FAERS Safety Report 22069415 (Version 1)
Quarter: 2023Q1

REPORT INFORMATION
  Report Type: Spontaneous
  Country: US (occurrence: US)
  Receive Date: 20230307
  Receipt Date: 20230307
  Transmission Date: 20230418
  Serious: No
  Sender: FDA-Public Use
  Company Number: US-AMNEAL PHARMACEUTICALS-2022-AMRX-04095

PATIENT
  Age: 70 Year
  Sex: Female
  Weight: 56.689 kg

DRUGS (5)
  1. RYTARY [Suspect]
     Active Substance: CARBIDOPA\LEVODOPA
     Indication: Parkinson^s disease
     Dosage: 1 CAPSULES(61.25/245 MG), 4 /DAY
     Route: 048
     Dates: start: 202003
  2. PROSEC [Concomitant]
     Indication: Abdominal discomfort
     Dosage: 1 CAPSULES(40 MG), 1 /DAY
     Route: 048
  3. GABAPENTIN [Concomitant]
     Active Substance: GABAPENTIN
     Indication: Neuropathy peripheral
     Dosage: 1 CAPSULES(300 MG), 1 /DAY
     Route: 048
  4. LEXAPRO [Concomitant]
     Active Substance: ESCITALOPRAM OXALATE
     Indication: Depression
     Dosage: 1 TABLETS, 1 /DAY
     Route: 048
  5. TYLENOL [CHLORPHENAMINE MALEATE;DEXTROMETHORPHAN HYDROBROMIDE;PARACETA [Concomitant]
     Indication: Rheumatoid arthritis
     Dosage: 2 TABLETS, EVERY 8HR
     Route: 048

REACTIONS (3)
  - Speech disorder [Recovered/Resolved]
  - Drug intolerance [Unknown]
  - Dyskinesia [Recovered/Resolved]

NARRATIVE: CASE EVENT DATE: 20220101
